FAERS Safety Report 9786159 (Version 1)
Quarter: 2013Q4

REPORT INFORMATION
  Report Type: Spontaneous
  Country: GB (occurrence: None)
  Receive Date: 20131224
  Receipt Date: 20131224
  Transmission Date: 20140711
  Serious: Yes (Other)
  Sender: FDA-Public Use
  Company Number: GB-DEXPHARM-20131167

PATIENT
  Age: 68 Year
  Sex: Male

DRUGS (2)
  1. OMEPRAZOLE [Suspect]
     Indication: GASTRITIS
     Dates: start: 20131126, end: 20131128
  2. PARACETAMOL [Concomitant]

REACTIONS (3)
  - Dyspnoea [None]
  - Diarrhoea [None]
  - Wheezing [None]
